FAERS Safety Report 22982663 (Version 3)
Quarter: 2024Q1

REPORT INFORMATION
  Report Type: Report from Study
  Country: ES (occurrence: ES)
  Receive Date: 20230926
  Receipt Date: 20240112
  Transmission Date: 20240410
  Serious: Yes (Other)
  Sender: FDA-Public Use
  Company Number: ES-CELLTRION INC.-2023ES018460

PATIENT

DRUGS (15)
  1. BEVACIZUMAB [Suspect]
     Active Substance: BEVACIZUMAB
     Indication: Hepatocellular carcinoma
     Dosage: 1141.5 MG
     Route: 065
     Dates: start: 20230104
  2. ATEZOLIZUMAB [Suspect]
     Active Substance: ATEZOLIZUMAB
     Indication: Hepatocellular carcinoma
     Dosage: 1200 MG
     Route: 042
     Dates: start: 20230104
  3. VENLAFAXINE HYDROCHLORIDE [Concomitant]
     Active Substance: VENLAFAXINE HYDROCHLORIDE
     Dosage: EVERY 1 DAY
  4. TEGRETOL [Concomitant]
     Active Substance: CARBAMAZEPINE
     Dosage: EVERY 0.5 DAY
  5. FOSTER [Concomitant]
     Active Substance: BECLOMETHASONE\FORMOTEROL
     Dosage: EVERY 0.5 DAY
     Dates: start: 20150925
  6. FORMOTEROL [Concomitant]
     Active Substance: FORMOTEROL
  7. FUROSEMIDE [Concomitant]
     Active Substance: FUROSEMIDE
     Dosage: EVERY 1 DAY
     Dates: start: 20230712
  8. SPIRIVA [Concomitant]
     Active Substance: TIOTROPIUM BROMIDE MONOHYDRATE
  9. INSULIN NOS [Concomitant]
     Active Substance: INSULIN NOS
     Dosage: EVERY 1  DAY
  10. TOUJEO [Concomitant]
     Active Substance: INSULIN GLARGINE
     Dosage: EVERY 1 DAY
  11. ENALAPRIL [Concomitant]
     Active Substance: ENALAPRIL
     Dosage: EVERY 1 DAY
  12. OLANZAPINE [Concomitant]
     Active Substance: OLANZAPINE
     Dosage: EVERY 1 DAY
  13. RISPERDAL [Concomitant]
     Active Substance: RISPERIDONE
     Dosage: EVERY 1 DAY
  14. TIOTROPIUM BROMIDE [Concomitant]
     Active Substance: TIOTROPIUM BROMIDE
     Dosage: EVERY 1 DAY
     Dates: start: 20150925
  15. LENVATINIB [Concomitant]
     Active Substance: LENVATINIB

REACTIONS (2)
  - Hypothyroidism [Recovering/Resolving]
  - Intentional product use issue [Unknown]

NARRATIVE: CASE EVENT DATE: 20230712
